FAERS Safety Report 9130677 (Version 1)
Quarter: 2013Q1

REPORT INFORMATION
  Report Type: Spontaneous
  Country: US (occurrence: US)
  Receive Date: 20130301
  Receipt Date: 20130301
  Transmission Date: 20140127
  Serious: Yes (Other)
  Sender: FDA-Public Use
  Company Number: US-AMGEN-USASP2013012800

PATIENT
  Sex: Female
  Weight: 113.38 kg

DRUGS (7)
  1. ENBREL [Suspect]
     Indication: RHEUMATOID ARTHRITIS
     Dosage: 50 MG, QWK
     Route: 058
  2. ATENOLOL [Concomitant]
     Dosage: 25 MG, UNK
  3. HYDROCHLOROTH [Concomitant]
     Dosage: 12.5 MG, UNK
  4. PREMARIN [Concomitant]
     Dosage: 0.625 MG, UNK
  5. ATORVASTATIN [Concomitant]
     Dosage: 10 MG, UNK
  6. GLIMEPIRIDE [Concomitant]
     Dosage: 1 MG, UNK
  7. VICODIN ES [Concomitant]
     Dosage: 7.5-300, UNK

REACTIONS (1)
  - Neoplasm malignant [Unknown]
